FAERS Safety Report 7575580-8 (Version None)
Quarter: 2011Q2

REPORT INFORMATION
  Report Type: 
  Country: None (occurrence: None)
  Receive Date: 20110627
  Receipt Date: 20110622
  Transmission Date: 20111010
  Serious: Yes (Death, Other)
  Sender: FDA-Public Use
  Company Number: PHHY2011MA55848

PATIENT
  Age: 51 Year
  Sex: Female

DRUGS (4)
  1. METHYLPREDNISOLONE [Suspect]
     Indication: VASCULITIS
  2. PREDNISONE [Suspect]
     Indication: VASCULITIS
     Dosage: 60 MG, DAILY
  3. PREDNISONE [Suspect]
     Dosage: 10 MG, DAILY
  4. CYCLOPHOSPHAMIDE [Suspect]
     Indication: VASCULITIS

REACTIONS (4)
  - KAPOSI'S SARCOMA [None]
  - RASH MACULO-PAPULAR [None]
  - DISSEMINATED INTRAVASCULAR COAGULATION [None]
  - HUMAN HERPES VIRUS 8 TEST POSITIVE [None]
